FAERS Safety Report 16851387 (Version 3)
Quarter: 2019Q4

REPORT INFORMATION
  Report Type: Spontaneous
  Country: US (occurrence: US)
  Receive Date: 20190925
  Receipt Date: 20191129
  Transmission Date: 20200122
  Serious: Yes (Death)
  Sender: FDA-Public Use
  Company Number: US-PFIZER INC-2019412806

PATIENT
  Age: 80 Year
  Sex: Male
  Weight: 90.7 kg

DRUGS (1)
  1. RETACRIT [Suspect]
     Active Substance: EPOETIN ALFA-EPBX
     Indication: ANAEMIA
     Dosage: UNK
     Dates: start: 201901

REACTIONS (2)
  - Large cell lung cancer stage IV [Fatal]
  - Drug ineffective [Unknown]
